FAERS Safety Report 10121010 (Version 2)
Quarter: 2014Q2

REPORT INFORMATION
  Report Type: Spontaneous
  Country: NL (occurrence: NL)
  Receive Date: 20140425
  Receipt Date: 20140428
  Transmission Date: 20141212
  Serious: Yes (Life-Threatening, Hospitalization)
  Sender: FDA-Public Use
  Company Number: NL-GLAXOSMITHKLINE-B0988600A

PATIENT
  Age: 66 Year
  Sex: Male

DRUGS (9)
  1. SALBUTAMOL [Suspect]
     Indication: BRONCHIAL HYPERREACTIVITY
     Dosage: 100MCG FOUR TIMES PER DAY
     Route: 055
     Dates: start: 20140409, end: 20140414
  2. ACETYLSALICYLZUUR [Concomitant]
     Dosage: 80MG PER DAY
     Route: 048
     Dates: start: 20140213
  3. BACLOFEN [Concomitant]
     Dosage: 20MG THREE TIMES PER DAY
     Route: 048
     Dates: start: 20140213
  4. OMEPRAZOL [Concomitant]
     Dosage: 40MG PER DAY
     Dates: start: 20140213
  5. PARACETAMOL [Concomitant]
     Dosage: 500MG THREE TIMES PER DAY
     Dates: start: 20140213
  6. PERSANTIN [Concomitant]
     Dosage: 200MG TWICE PER DAY
     Route: 048
     Dates: start: 20140213
  7. SIMVASTATINE [Concomitant]
     Dosage: 40MG PER DAY
     Dates: start: 20140213
  8. MOVICOLON [Concomitant]
     Dates: start: 20140213
  9. LIDOCAINE [Concomitant]
     Dates: start: 20140410

REACTIONS (1)
  - Bronchospasm [Recovered/Resolved]
